FAERS Safety Report 8902680 (Version 2)
Quarter: 2012Q4

REPORT INFORMATION
  Report Type: Report from Study
  Country: FR (occurrence: FR)
  Receive Date: 20121112
  Receipt Date: 20121116
  Transmission Date: 20130627
  Serious: Yes (Other)
  Sender: FDA-Public Use
  Company Number: FR-NOVOPROD-363124

PATIENT
  Age: 62 Year
  Sex: Male
  Weight: 105 kg

DRUGS (7)
  1. LIRAGLUTIDE FLEXPEN [Suspect]
     Indication: TYPE 2 DIABETES MELLITUS
     Dosage: 0.6 mg, qd
     Route: 058
     Dates: start: 20110719, end: 20120410
  2. LERCAPRESS [Concomitant]
     Indication: HYPERTENSION
     Dosage: 30 mg, UNK
     Route: 048
     Dates: start: 20101010
  3. NEBILOX [Concomitant]
     Indication: HYPERTENSION
     Dosage: 2 mg, qd
     Route: 048
     Dates: start: 2007
  4. ALLOPURINOL [Concomitant]
     Indication: HYPERURICAEMIA
     Dosage: 300 mg, qd
     Route: 048
     Dates: start: 20000814
  5. KARDEGIC [Concomitant]
     Dosage: 75 mg, qd
     Route: 048
     Dates: start: 20071121
  6. METFORMINE [Concomitant]
     Indication: TYPE 2 DIABETES MELLITUS
     Dosage: 2 g, qd
     Route: 048
     Dates: start: 20110727
  7. EZETROL [Concomitant]
     Indication: HYPERCHOLESTEROLAEMIA
     Dosage: 10 mg, qd
     Route: 048
     Dates: start: 201003

REACTIONS (1)
  - Hypothyroidism [Unknown]
